FAERS Safety Report 7440553-2 (Version None)
Quarter: 2011Q2

REPORT INFORMATION
  Report Type: 
  Country: None (occurrence: None)
  Receive Date: 20110427
  Receipt Date: 20110425
  Transmission Date: 20111010
  Serious: Yes (Death)
  Sender: FDA-Public Use
  Company Number: A0922543A

PATIENT
  Sex: Female

DRUGS (3)
  1. FLONASE [Suspect]
  2. ADVAIR DISKUS 100/50 [Suspect]
     Dates: start: 20090102
  3. VENTOLIN [Suspect]

REACTIONS (1)
  - DEATH [None]
